FAERS Safety Report 11810244 (Version 5)
Quarter: 2016Q2

REPORT INFORMATION
  Report Type: Spontaneous
  Country: JP (occurrence: JP)
  Receive Date: 20151208
  Receipt Date: 20160517
  Transmission Date: 20160815
  Serious: Yes (Hospitalization, Other)
  Sender: FDA-Public Use
  Company Number: JP-ASTELLAS-2015JP024184

PATIENT
  Age: 77 Year
  Sex: Male
  Weight: 56 kg

DRUGS (19)
  1. RAMOSETRON [Concomitant]
     Active Substance: RAMOSETRON HYDROCHLORIDE
     Indication: HORMONE-REFRACTORY PROSTATE CANCER
     Dosage: 0.3 MG, ONCE DAILY
     Route: 042
     Dates: start: 20150127, end: 20151119
  2. PROSTAT                            /00093602/ [Concomitant]
     Indication: HORMONE-REFRACTORY PROSTATE CANCER
     Route: 065
     Dates: start: 20060228
  3. XTANDI [Suspect]
     Active Substance: ENZALUTAMIDE
     Indication: HORMONE-REFRACTORY PROSTATE CANCER
     Route: 048
     Dates: start: 20151119, end: 20151129
  4. MAGMITT [Concomitant]
     Active Substance: MAGNESIUM OXIDE
     Indication: CONSTIPATION
     Dosage: UNK UNK, THRICE DAILY
     Route: 048
     Dates: start: 20140821
  5. PROSEXOL [Concomitant]
     Active Substance: ETHINYL ESTRADIOL
     Route: 065
     Dates: end: 20070130
  6. TAXOTERE [Concomitant]
     Active Substance: DOCETAXEL
     Indication: HORMONE-REFRACTORY PROSTATE CANCER
     Dosage: 80 MG, EVERY 6 WEEKS
     Route: 041
     Dates: start: 20150127, end: 20151119
  7. RABEPRAZOLE [Concomitant]
     Active Substance: RABEPRAZOLE
     Indication: GASTRITIS
     Route: 048
     Dates: start: 20140821, end: 20151202
  8. ZOLEDRONIC ACID [Concomitant]
     Active Substance: ZOLEDRONIC ACID
     Indication: HORMONE-REFRACTORY PROSTATE CANCER
     Route: 042
     Dates: start: 20150127
  9. ESTRACYT                           /00327003/ [Concomitant]
     Dosage: UNK UNK, TWICE WEEKLY
     Route: 065
  10. ESTRACYT                           /00327003/ [Concomitant]
     Dosage: UNK UNK, EVERY OTHER DAY
     Route: 048
     Dates: start: 20151221
  11. PROSEXOL [Concomitant]
     Active Substance: ETHINYL ESTRADIOL
     Dosage: UNK UNK, UNKNOWN FREQ.
     Route: 065
     Dates: start: 20070425
  12. DECADRON [Concomitant]
     Active Substance: DEXAMETHASONE
     Indication: HORMONE-REFRACTORY PROSTATE CANCER
     Dosage: 0.5 MG, ONCE DAILY
     Route: 048
     Dates: start: 20131023, end: 20151210
  13. ESTRACYT                           /00327003/ [Concomitant]
     Dosage: UNK UNK, EVERY OTHER DAY
     Route: 048
  14. PROSEXOL [Concomitant]
     Active Substance: ETHINYL ESTRADIOL
     Indication: HORMONE-REFRACTORY PROSTATE CANCER
     Route: 065
     Dates: start: 20061017
  15. SENNA [Concomitant]
     Active Substance: SENNA LEAF\SENNOSIDES\SENNOSIDES A AND B
     Indication: CONSTIPATION
     Dosage: 0.5, ONCE DAILY
     Route: 048
     Dates: start: 20150709
  16. ESTRACYT                           /00327003/ [Concomitant]
     Indication: HORMONE-REFRACTORY PROSTATE CANCER
     Dosage: UNK UNK, ONCE WEEKLY
     Route: 065
     Dates: start: 201211
  17. PROSEXOL [Concomitant]
     Active Substance: ETHINYL ESTRADIOL
     Dosage: UNK UNK, ONCE WEEKLY
     Route: 048
  18. PROSEXOL [Concomitant]
     Active Substance: ETHINYL ESTRADIOL
     Dosage: UNK UNK, EVERY 3 DAYS
     Route: 048
     Dates: start: 201102
  19. PROSTAT                            /00093602/ [Concomitant]
     Dosage: UNK, UNKNOWN FREQ.
     Route: 065
     Dates: start: 20090204

REACTIONS (3)
  - Pyrexia [Recovering/Resolving]
  - Thrombocytopenia [Recovered/Resolved]
  - Generalised erythema [Recovering/Resolving]

NARRATIVE: CASE EVENT DATE: 20151128
